FAERS Safety Report 9669539 (Version 1)
Quarter: 2013Q4

REPORT INFORMATION
  Report Type: Spontaneous
  Country: US (occurrence: US)
  Receive Date: 20131105
  Receipt Date: 20131105
  Transmission Date: 20140711
  Serious: No
  Sender: FDA-Public Use
  Company Number: US-PFIZER INC-2013313769

PATIENT
  Age: 40 Year
  Sex: Female

DRUGS (2)
  1. CELEBREX [Suspect]
     Dosage: 200 MG, Q12- 24H
     Route: 048
  2. TYLENOL [Concomitant]
     Dosage: UNK

REACTIONS (1)
  - Blood creatinine increased [Recovered/Resolved]
